FAERS Safety Report 23133241 (Version 4)
Quarter: 2023Q4

REPORT INFORMATION
  Report Type: Report from Study
  Country: TW (occurrence: None)
  Receive Date: 20231101
  Receipt Date: 20231124
  Transmission Date: 20240110
  Serious: Yes (Hospitalization)
  Sender: FDA-Public Use
  Company Number: TW-ROCHE-3448686

PATIENT
  Age: 57 Year
  Sex: Male
  Weight: 57 kg

DRUGS (5)
  1. ATEZOLIZUMAB [Suspect]
     Active Substance: ATEZOLIZUMAB
     Indication: Hepatocellular carcinoma
     Dosage: LAST DOSE OF ATEZOLIZUMAB RECEIVED PRIOR TO THE EVENT WAS ON 27/SEP/2023.
     Route: 041
     Dates: start: 20230118
  2. BEVACIZUMAB [Suspect]
     Active Substance: BEVACIZUMAB
     Indication: Hepatocellular carcinoma
     Dosage: LAST DOSE OF BEVACIZUMAB RECEIVED PRIOR TO THE EVENT WAS ON 27/SEP/2023.
     Route: 042
     Dates: start: 20230118
  3. SRF-388 [Suspect]
     Active Substance: SRF-388
     Indication: Hepatocellular carcinoma
     Dosage: LAST DOSE OF SRF388 RECEIVED PRIOR TO THE EVENT WAS ON 27/SEP/2023
     Route: 042
     Dates: start: 20230118, end: 20230927
  4. ENTECAVIR [Concomitant]
     Active Substance: ENTECAVIR
     Dates: start: 20220715
  5. LEVOCETIRIZINE [Concomitant]
     Active Substance: LEVOCETIRIZINE
     Dates: start: 20230816, end: 20231016

REACTIONS (3)
  - Colitis [Recovered/Resolved with Sequelae]
  - Duodenal perforation [Not Recovered/Not Resolved]
  - Peritonitis [Not Recovered/Not Resolved]

NARRATIVE: CASE EVENT DATE: 20231012
